FAERS Safety Report 17604756 (Version 1)
Quarter: 2020Q1

REPORT INFORMATION
  Report Type: Report from Study
  Country: US (occurrence: US)
  Receive Date: 20200331
  Receipt Date: 20200331
  Transmission Date: 20200409
  Serious: No
  Sender: FDA-Public Use
  Company Number: US-KYOWAKIRIN-2020BKK004785

PATIENT

DRUGS (1)
  1. NOURIANZ [Suspect]
     Active Substance: ISTRADEFYLLINE
     Indication: PARKINSON^S DISEASE
     Dosage: 20 MG, QD
     Route: 048
     Dates: start: 20200320

REACTIONS (4)
  - Freezing phenomenon [Unknown]
  - Energy increased [Unknown]
  - Condition aggravated [Unknown]
  - Dyskinesia [Unknown]

NARRATIVE: CASE EVENT DATE: 202003
